FAERS Safety Report 4608123-9 (Version None)
Quarter: 2005Q1

REPORT INFORMATION
  Report Type: 
  Country: None (occurrence: None)
  Receive Date: 20050301
  Receipt Date: 20040203
  Transmission Date: 20050727
  Serious: Yes (Life-Threatening, Hospitalization)
  Sender: FDA-Public Use
  Company Number: BDI-005803

PATIENT
  Sex: Male

DRUGS (2)
  1. ISOVUE-370 [Suspect]
     Indication: NEPHROLITHIASIS
     Dosage: 25 ML ONCE IV
     Route: 042
     Dates: start: 20040122, end: 20040122
  2. ISOVUE-370 [Suspect]
     Indication: UROGRAPHY
     Dosage: 25 ML ONCE IV
     Route: 042
     Dates: start: 20040122, end: 20040122

REACTIONS (3)
  - CARDIO-RESPIRATORY ARREST [None]
  - CONVULSION [None]
  - PRURITUS [None]
